FAERS Safety Report 13091665 (Version 1)
Quarter: 2017Q1

REPORT INFORMATION
  Report Type: Spontaneous
  Country: US (occurrence: US)
  Receive Date: 20170106
  Receipt Date: 20170106
  Transmission Date: 20170428
  Serious: No
  Sender: FDA-Public Use
  Company Number: US-TEVA-720212ACC

PATIENT
  Sex: Female

DRUGS (1)
  1. PLAN B ONE-STEP [Suspect]
     Active Substance: LEVONORGESTREL
     Indication: POST COITAL CONTRACEPTION
     Dates: start: 201605, end: 201605

REACTIONS (5)
  - Mood swings [Recovered/Resolved]
  - Muscle spasms [Recovered/Resolved]
  - Cyst [Recovered/Resolved]
  - Breast tenderness [Recovered/Resolved]
  - Rash [Recovered/Resolved]
